FAERS Safety Report 5624895-9 (Version None)
Quarter: 2008Q1

REPORT INFORMATION
  Report Type: 
  Country: None (occurrence: None)
  Receive Date: 20080213
  Receipt Date: 20080202
  Transmission Date: 20080703
  Serious: Yes (Other)
  Sender: FDA-Public Use
  Company Number: US-PFIZER INC-2008007469

PATIENT
  Sex: Male
  Weight: 88.5 kg

DRUGS (1)
  1. CHANTIX [Suspect]
     Indication: SMOKING CESSATION THERAPY
     Dates: start: 20070101, end: 20070813

REACTIONS (6)
  - AGGRESSION [None]
  - AGITATION [None]
  - ANGER [None]
  - DYSPNOEA [None]
  - PERSONALITY CHANGE [None]
  - WITHDRAWAL SYNDROME [None]
